FAERS Safety Report 21422550 (Version 1)
Quarter: 2022Q4

REPORT INFORMATION
  Report Type: Spontaneous
  Country: RU (occurrence: RU)
  Receive Date: 20221007
  Receipt Date: 20221007
  Transmission Date: 20230113
  Serious: Yes (Death, Other)
  Sender: FDA-Public Use
  Company Number: RU-009507513-2210RUS001451

PATIENT
  Age: 65 Year
  Sex: Female

DRUGS (2)
  1. PEMBROLIZUMAB [Suspect]
     Active Substance: PEMBROLIZUMAB
     Indication: Endometrial cancer
     Dosage: 200 MG I/V ONCE EVERY THREE WEEKS
     Route: 042
     Dates: start: 20190118
  2. LENVATINIB MESYLATE [Suspect]
     Active Substance: LENVATINIB MESYLATE
     Indication: Endometrial cancer
     Dosage: 20 MG PER DAY

REACTIONS (6)
  - Malignant neoplasm progression [Fatal]
  - Hypothyroidism [Unknown]
  - Dysphonia [Unknown]
  - Skin toxicity [Unknown]
  - Asthenia [Unknown]
  - Hypertension [Unknown]

NARRATIVE: CASE EVENT DATE: 20200225
